FAERS Safety Report 9902974 (Version 2)
Quarter: 2014Q1

REPORT INFORMATION
  Report Type: Spontaneous
  Country: IT (occurrence: IT)
  Receive Date: 20140217
  Receipt Date: 20140322
  Transmission Date: 20141002
  Serious: Yes (Other)
  Sender: FDA-Public Use
  Company Number: PHHY2014IT018880

PATIENT
  Age: 14 Year
  Sex: Male

DRUGS (5)
  1. RITALIN [Suspect]
     Indication: ATTENTION DEFICIT/HYPERACTIVITY DISORDER
     Dosage: 25 MG, DAILY
     Route: 048
     Dates: start: 20131212, end: 20131214
  2. RITALIN [Suspect]
     Dosage: UNK (DOSE REDUCED)
     Route: 048
  3. XANAX [Suspect]
     Indication: ANXIETY
     Dosage: 10 DRP, DAILY
     Route: 048
     Dates: start: 20131212, end: 20131214
  4. LITHIUM [Concomitant]
     Dosage: 1200 MG, UNK
     Route: 048
     Dates: start: 20110211, end: 20131218
  5. ATOMOXETINE [Concomitant]
     Dosage: 60 MG, UNK
     Route: 048
     Dates: start: 20110211, end: 20131218

REACTIONS (2)
  - Paradoxical drug reaction [Recovered/Resolved]
  - Mania [Recovered/Resolved]
